FAERS Safety Report 5834885-9 (Version None)
Quarter: 2008Q3

REPORT INFORMATION
  Report Type: 
  Country: None (occurrence: None)
  Receive Date: 20080806
  Receipt Date: 20080730
  Transmission Date: 20090109
  Serious: Yes (Other)
  Sender: FDA-Public Use
  Company Number: BR-BAYER-200816695LA

PATIENT
  Age: 32 Year
  Sex: Female

DRUGS (5)
  1. BETAFERON [Suspect]
     Indication: MULTIPLE SCLEROSIS
     Route: 058
     Dates: start: 20030101
  2. ACETAMINOPHEN [Concomitant]
     Indication: PAIN
     Dosage: TOTAL DAILY DOSE: 750 MG  UNIT DOSE: 750 MG
     Route: 048
     Dates: start: 20050101
  3. AZATHIOPRINE [Concomitant]
     Indication: MULTIPLE SCLEROSIS
     Dosage: TOTAL DAILY DOSE: 50 MG  UNIT DOSE: 50 MG
     Route: 048
     Dates: start: 20060101
  4. BACLON [Concomitant]
     Indication: PAIN
     Dosage: TOTAL DAILY DOSE: 10 MG  UNIT DOSE: 10 MG
     Route: 048
     Dates: start: 20080301
  5. FLUOXETINA [Concomitant]
     Indication: DEPRESSION
     Dosage: TOTAL DAILY DOSE: 20 MG  UNIT DOSE: 20 MG
     Route: 048
     Dates: start: 20050101

REACTIONS (1)
  - SUICIDAL IDEATION [None]
